FAERS Safety Report 12039923 (Version 1)
Quarter: 2016Q1

REPORT INFORMATION
  Report Type: Spontaneous
  Country: US (occurrence: US)
  Receive Date: 20160208
  Receipt Date: 20160208
  Transmission Date: 20160526
  Serious: No
  Sender: FDA-Public Use
  Company Number: US-BAYER-2016-024771

PATIENT
  Age: 60 Year
  Sex: Female
  Weight: 68.2 kg

DRUGS (1)
  1. MIRALAX [Suspect]
     Active Substance: POLYETHYLENE GLYCOL 3350
     Indication: DYSPEPSIA
     Dosage: 1 DF, PRN
     Route: 048
     Dates: start: 201601, end: 201602

REACTIONS (3)
  - Flatulence [None]
  - Product use issue [None]
  - Abdominal distension [None]

NARRATIVE: CASE EVENT DATE: 201601
